FAERS Safety Report 5381872-3 (Version None)
Quarter: 2007Q3

REPORT INFORMATION
  Report Type: 
  Country: None (occurrence: None)
  Receive Date: 20070709
  Receipt Date: 20070628
  Transmission Date: 20080115
  Serious: Yes (Hospitalization)
  Sender: FDA-Public Use
  Company Number: GB-ROCHE-495581

PATIENT
  Age: 57 Year
  Sex: Male
  Weight: 113 kg

DRUGS (13)
  1. XENICAL [Suspect]
     Indication: OBESITY
     Route: 048
     Dates: start: 20070403
  2. QUININE SULFATE [Concomitant]
     Indication: EPILEPSY
     Route: 048
     Dates: end: 20070505
  3. VALPROATE SODIUM [Concomitant]
     Indication: EPILEPSY
     Route: 048
  4. BENDROFLUMETHIAZIDE [Concomitant]
     Indication: ASTHMA
     Route: 055
  5. TRAMADOL HCL [Concomitant]
     Indication: BACK PAIN
     Route: 048
  6. OMEPRAZOLE [Concomitant]
  7. SALBUTAMOL [Concomitant]
  8. FLUTICASONE/SALMETEROL [Concomitant]
  9. PERINDOPRIL TERT-BUTYLAMINE [Concomitant]
  10. SENNA [Concomitant]
  11. HYOSCINE HBR HYT [Concomitant]
  12. CLONAZEPAM [Concomitant]
  13. DOXAZOSIN MESYLATE [Concomitant]

REACTIONS (3)
  - HYPERHIDROSIS [None]
  - HYPERVENTILATION [None]
  - PALPITATIONS [None]
